FAERS Safety Report 15870315 (Version 1)
Quarter: 2019Q1

REPORT INFORMATION
  Report Type: Spontaneous
  Country: KR (occurrence: KR)
  Receive Date: 20190125
  Receipt Date: 20190125
  Transmission Date: 20190417
  Serious: Yes (Other)
  Sender: FDA-Public Use
  Company Number: KR-ALKEM LABORATORIES LIMITED-ZA-ALKEM-2018-03708

PATIENT

DRUGS (6)
  1. LINEZOLID. [Suspect]
     Active Substance: LINEZOLID
     Dosage: 300 MG, QD, STOPPED FOR 12 DAYS
     Route: 065
  2. LINEZOLID. [Suspect]
     Active Substance: LINEZOLID
     Indication: TUBERCULOSIS
     Dosage: 600 MG, QD
     Route: 065
  3. ISONIAZID. [Suspect]
     Active Substance: ISONIAZID
     Indication: TUBERCULOSIS
     Dosage: UNK
     Route: 065
  4. CLARITHROMYCIN. [Suspect]
     Active Substance: CLARITHROMYCIN
     Indication: TUBERCULOSIS
     Dosage: UNK
     Route: 065
  5. AMOXICILLIN (AS TRIHYDRATE) AND CLAVULANIC ACID (AS POTASSIUM) [Suspect]
     Active Substance: AMOXICILLIN\CLAVULANATE POTASSIUM
     Indication: TUBERCULOSIS
     Dosage: UNK
     Route: 065
  6. LINEZOLID. [Suspect]
     Active Substance: LINEZOLID
     Dosage: 300 MG, QD, STOPPED FOR 22 DAYS
     Route: 065

REACTIONS (6)
  - Drug resistance [Unknown]
  - Treatment failure [Unknown]
  - Therapy non-responder [Unknown]
  - Disease recurrence [Unknown]
  - Neuropathy peripheral [Unknown]
  - Anaemia [Unknown]
